FAERS Safety Report 11215650 (Version 1)
Quarter: 2015Q2

REPORT INFORMATION
  Report Type: Spontaneous
  Country: US (occurrence: US)
  Receive Date: 20150624
  Receipt Date: 20150624
  Transmission Date: 20150821
  Serious: Yes (Other)
  Sender: FDA-Public Use
  Company Number: US-SA-2015SA088492

PATIENT
  Sex: Male

DRUGS (3)
  1. LANTUS SOLOSTAR [Suspect]
     Active Substance: INSULIN GLARGINE
     Indication: TYPE 2 DIABETES MELLITUS
     Dosage: DOSE: ON SLIDING SCALE
     Route: 065
     Dates: start: 2007
  2. SOLOSTAR [Concomitant]
     Active Substance: DEVICE
     Dates: start: 2007
  3. LANTUS [Suspect]
     Active Substance: INSULIN GLARGINE
     Indication: DIABETES MELLITUS
     Dosage: DOSE ON SLIDING SCALE
     Route: 065

REACTIONS (12)
  - Vomiting [Unknown]
  - Glaucoma [Unknown]
  - Throat cancer [Unknown]
  - Depression [Unknown]
  - Seizure [Unknown]
  - Coronary artery bypass [Unknown]
  - Macular degeneration [Unknown]
  - Hyperhidrosis [Unknown]
  - Pancreatitis [Unknown]
  - Cerebrovascular accident [Unknown]
  - Blindness unilateral [Unknown]
  - Loss of consciousness [Unknown]
